FAERS Safety Report 8857779 (Version 2)
Quarter: 2012Q4

REPORT INFORMATION
  Report Type: Report from Study
  Country: CA (occurrence: CA)
  Receive Date: 20121024
  Receipt Date: 20121126
  Transmission Date: 20130627
  Serious: Yes (Hospitalization)
  Sender: FDA-Public Use
  Company Number: CA-ABBOTT-12P-028-0996514-00

PATIENT
  Age: 88 Year
  Sex: Male

DRUGS (5)
  1. LUPRON DEPOT [Suspect]
     Indication: PRODUCT USED FOR UNKNOWN INDICATION
     Route: 058
     Dates: start: 20110915
  2. HUMALOG [Suspect]
     Indication: PRODUCT USED FOR UNKNOWN INDICATION
  3. HUMALOG [Suspect]
  4. METOPROLOL [Concomitant]
     Indication: PRODUCT USED FOR UNKNOWN INDICATION
  5. LASIX [Concomitant]
     Indication: PRODUCT USED FOR UNKNOWN INDICATION

REACTIONS (6)
  - Bronchial hyperreactivity [Recovering/Resolving]
  - Cardiac failure [Recovering/Resolving]
  - Acute myocardial infarction [Recovering/Resolving]
  - Chronic obstructive pulmonary disease [Recovered/Resolved]
  - Personality change [Unknown]
  - Hypoglycaemia [Unknown]
